FAERS Safety Report 8136711-4 (Version None)
Quarter: 2012Q1

REPORT INFORMATION
  Report Type: 
  Country: None (occurrence: None)
  Receive Date: 20120214
  Receipt Date: 20120208
  Transmission Date: 20120608
  Serious: No
  Sender: FDA-Public Use
  Company Number: US-BAYER-2012-013621

PATIENT
  Sex: Female

DRUGS (2)
  1. FINACEA [Suspect]
     Indication: ROSACEA
     Dosage: ONCE A DA IN THE MORNING
  2. METRONIDAZOLE [Concomitant]
     Indication: ROSACEA
     Dosage: USE AT NIGHT

REACTIONS (4)
  - BURNING SENSATION [None]
  - SKIN DISCOLOURATION [None]
  - PAIN [None]
  - OCULAR HYPERAEMIA [None]
